FAERS Safety Report 17064012 (Version 1)
Quarter: 2019Q4

REPORT INFORMATION
  Report Type: Spontaneous
  Country: ES (occurrence: ES)
  Receive Date: 20191122
  Receipt Date: 20191122
  Transmission Date: 20200122
  Serious: Yes (Life-Threatening, Hospitalization)
  Sender: FDA-Public Use
  Company Number: NVSC2019ES043585

PATIENT
  Age: 17 Year
  Sex: Female

DRUGS (2)
  1. PARACETAMOL [Suspect]
     Active Substance: ACETAMINOPHEN
     Indication: SUICIDE ATTEMPT
     Dosage: 27 G, TOTAL
     Route: 048
     Dates: start: 20190803, end: 20190803
  2. MELATONINA [Concomitant]
     Indication: SUICIDE ATTEMPT
     Dosage: 6 GTT (DROP (1/12 MILLILITRE)), TOTAL
     Route: 048
     Dates: start: 20190803, end: 20190803

REACTIONS (3)
  - Hepatitis [Recovered/Resolved]
  - Hyperbilirubinaemia [Recovered/Resolved]
  - Coagulopathy [Recovered/Resolved]

NARRATIVE: CASE EVENT DATE: 20190803
